FAERS Safety Report 6972579-7 (Version None)
Quarter: 2010Q3

REPORT INFORMATION
  Report Type: 
  Country: None (occurrence: None)
  Receive Date: 20100909
  Receipt Date: 20100729
  Transmission Date: 20110219
  Serious: Yes (Hospitalization)
  Sender: FDA-Public Use
  Company Number: IE-SANOFI-AVENTIS-2010SA038399

PATIENT
  Age: 35 Year
  Sex: Female
  Weight: 73 kg

DRUGS (20)
  1. TAXOTERE [Suspect]
     Indication: BREAST CANCER
     Route: 042
     Dates: start: 20100622, end: 20100622
  2. TAXOTERE [Suspect]
     Route: 042
     Dates: start: 20100622, end: 20100622
  3. TAXOTERE [Suspect]
     Route: 042
     Dates: start: 20100601, end: 20100601
  4. DEXAMETHASONE [Concomitant]
     Route: 048
     Dates: start: 20100531, end: 20100602
  5. DEXAMETHASONE [Concomitant]
     Route: 042
     Dates: start: 20100601, end: 20100601
  6. DEXAMETHASONE [Concomitant]
     Route: 048
     Dates: start: 20100621, end: 20100623
  7. DEXAMETHASONE [Concomitant]
     Route: 042
     Dates: start: 20100622, end: 20100622
  8. HYDROCORTISONE [Concomitant]
     Route: 042
     Dates: start: 20100601, end: 20100601
  9. HYDROCORTISONE [Concomitant]
     Route: 042
     Dates: start: 20100622, end: 20100622
  10. ALOXI [Concomitant]
     Route: 042
     Dates: start: 20100601, end: 20100601
  11. ALOXI [Concomitant]
     Route: 042
     Dates: start: 20100622, end: 20100622
  12. PIRITON [Concomitant]
     Route: 042
     Dates: start: 20100601, end: 20100601
  13. PIRITON [Concomitant]
     Route: 042
     Dates: start: 20100622, end: 20100622
  14. RANITIDINE [Concomitant]
     Dates: start: 20100601, end: 20100601
  15. RANITIDINE [Concomitant]
     Dates: start: 20100622, end: 20100622
  16. CARBOPLATIN [Concomitant]
     Indication: BREAST CANCER
     Route: 042
     Dates: start: 20100601, end: 20100601
  17. CARBOPLATIN [Concomitant]
     Route: 042
     Dates: start: 20100622, end: 20100622
  18. TRASTUZUMAB [Concomitant]
     Indication: BREAST CANCER
     Route: 042
     Dates: start: 20100601, end: 20100601
  19. TRASTUZUMAB [Concomitant]
     Route: 042
     Dates: start: 20100622, end: 20100622
  20. NEULASTA [Concomitant]
     Route: 042
     Dates: start: 20100622, end: 20100622

REACTIONS (12)
  - ABDOMINAL PAIN UPPER [None]
  - ABSCESS [None]
  - BACK PAIN [None]
  - CHEST PAIN [None]
  - DECREASED APPETITE [None]
  - DIARRHOEA [None]
  - FEBRILE NEUTROPENIA [None]
  - FLUSHING [None]
  - MOUTH ULCERATION [None]
  - NAUSEA [None]
  - TENDONITIS [None]
  - TOOTH FRACTURE [None]
